FAERS Safety Report 11419693 (Version 1)
Quarter: 2015Q3

REPORT INFORMATION
  Report Type: Other
  Country: US (occurrence: US)
  Receive Date: 20150826
  Receipt Date: 20150826
  Transmission Date: 20151125
  Serious: Yes (Hospitalization)
  Sender: FDA-Public Use
  Company Number: US-UNITED THERAPEUTICS-UNT-2015-008794

PATIENT
  Age: 46 Year
  Sex: Female
  Weight: 72.56 kg

DRUGS (3)
  1. ORENITRAM [Suspect]
     Active Substance: TREPROSTINIL
     Indication: PULMONARY HYPERTENSION
     Dosage: 0.37 MG, TID
     Route: 048
     Dates: start: 20150520
  2. ORENITRAM [Suspect]
     Active Substance: TREPROSTINIL
     Dosage: 0.25 MG, TID
     Route: 048
  3. ORENITRAM [Suspect]
     Active Substance: TREPROSTINIL
     Dosage: UNK

REACTIONS (9)
  - Headache [Unknown]
  - Hyperhidrosis [Unknown]
  - Bradycardia [Unknown]
  - Dysphagia [Unknown]
  - Fatigue [Unknown]
  - Dry throat [Unknown]
  - Oxygen saturation decreased [Unknown]
  - Migraine [Not Recovered/Not Resolved]
  - Thirst [Unknown]

NARRATIVE: CASE EVENT DATE: 201507
